FAERS Safety Report 21825031 (Version 1)
Quarter: 2023Q1

REPORT INFORMATION
  Report Type: Spontaneous
  Country: CH (occurrence: CH)
  Receive Date: 20230105
  Receipt Date: 20230105
  Transmission Date: 20230418
  Serious: Yes (Life-Threatening, Hospitalization)
  Sender: FDA-Public Use
  Company Number: None

PATIENT
  Age: 75 Year
  Sex: Female
  Weight: 80 kg

DRUGS (13)
  1. PLENVU [Suspect]
     Active Substance: ASCORBIC ACID\POLYETHYLENE GLYCOL 3350\POTASSIUM CHLORIDE\SODIUM ASCORBATE\SODIUM CHLORIDE\SODIUM SU
     Indication: Bowel preparation
     Dosage: 3 DOSAGE FORM (DOSE 1 AND 2, EXTRA DOSE 1 (3 IN TOTAL))
     Route: 048
     Dates: start: 20221205, end: 20221205
  2. XULTOPHY 100/3.6 [Suspect]
     Active Substance: INSULIN DEGLUDEC\LIRAGLUTIDE
     Indication: Diabetes mellitus
     Route: 058
     Dates: end: 20221207
  3. METFORMIN [Suspect]
     Active Substance: METFORMIN HYDROCHLORIDE
     Indication: Diabetes mellitus
     Route: 048
     Dates: end: 20221207
  4. DULOXETINE HYDROCHLORIDE [Concomitant]
     Active Substance: DULOXETINE HYDROCHLORIDE
     Indication: Depression
     Dosage: LONG TERM
     Route: 048
  5. POLYETHYLENE GLYCOLS [Concomitant]
     Active Substance: POLYETHYLENE GLYCOLS
     Indication: Constipation
     Dosage: 2 SACHETS, QD
     Route: 048
     Dates: end: 20221205
  6. BENSERAZIDE HYDROCHLORIDE\LEVODOPA [Concomitant]
     Active Substance: BENSERAZIDE HYDROCHLORIDE\LEVODOPA
     Indication: Parkinsonism
     Dosage: LONG TERM (1X AT 12:00 AND 1X AT 18:00)
     Route: 048
     Dates: start: 20221205
  7. BENSERAZIDE HYDROCHLORIDE\LEVODOPA [Concomitant]
     Active Substance: BENSERAZIDE HYDROCHLORIDE\LEVODOPA
     Indication: Parkinsonism
     Dosage: LONG TERM (1X AT 12:00 AND 1X AT 18:00)
     Route: 048
     Dates: start: 20221205
  8. RAMIPRIL [Concomitant]
     Active Substance: RAMIPRIL
     Indication: Hypertension
     Dosage: LONG TERM
     Route: 048
  9. RAMIPRIL [Concomitant]
     Active Substance: RAMIPRIL
     Dosage: 5 MG IN ADDITION TO THE USUAL EVENING DOSE
     Route: 048
     Dates: start: 20221206, end: 20221206
  10. CLORAZEPATE ZENTIVA [Concomitant]
     Indication: Anxiety
     Dosage: LONG TERM (DISCONTINUATION ON 07/DEC/2022 BUT RESUMED AROUND 10/DEC/2022)
     Route: 048
     Dates: end: 20221207
  11. CLORAZEPATE ZENTIVA [Concomitant]
     Dosage: LONG TERM (DISCONTINUATION ON 07/DEC/2022 BUT RESUMED AROUND 10/DEC/2022)
     Route: 048
     Dates: start: 202212
  12. METRONIDAZOLE [Concomitant]
     Active Substance: METRONIDAZOLE
     Indication: Sepsis
     Dosage: 500 MG
     Dates: start: 202212
  13. CEFTRIAXONE [Concomitant]
     Active Substance: CEFTRIAXONE
     Indication: Sepsis
     Dosage: 2 G
     Route: 042
     Dates: start: 202212

REACTIONS (10)
  - Coma scale abnormal [Recovered/Resolved]
  - Hypovolaemic shock [Recovered/Resolved]
  - Acute kidney injury [Recovered/Resolved]
  - Ischaemic hepatitis [Recovered/Resolved]
  - Lactic acidosis [Recovered/Resolved]
  - Inflammation [Recovered/Resolved]
  - Diarrhoea [Recovered/Resolved]
  - Hypernatraemia [Recovered/Resolved]
  - Dehydration [Recovered/Resolved]
  - Intentional product use issue [Unknown]

NARRATIVE: CASE EVENT DATE: 20221201
